FAERS Safety Report 9915744 (Version 3)
Quarter: 2014Q2

REPORT INFORMATION
  Report Type: Spontaneous
  Country: IT (occurrence: None)
  Receive Date: 20140218
  Receipt Date: 20140421
  Transmission Date: 20141212
  Serious: Yes (Hospitalization)
  Sender: FDA-Public Use
  Company Number: AUR-APL-2014-01560

PATIENT
  Age: 72 Year
  Sex: Female

DRUGS (5)
  1. LEVOFLOXACIN [Suspect]
     Indication: PRODUCT USED FOR UNKNOWN INDICATION
     Dosage: 10 DOSAGE FORMS, TOTAL, ORAL ?
     Route: 048
     Dates: start: 20131230, end: 20140108
  2. COUMADIN [Suspect]
     Indication: CEREBRAL ISCHAEMIA
     Dosage: 1 DOSAGE FORMS, AS REQUIRED, ORAL
     Route: 048
     Dates: start: 20020101, end: 20140111
  3. MODURETIC (MODURETIC) [Concomitant]
  4. EUTIROX (LEVOTHYROXINE SODIUM) [Concomitant]
  5. ENALAPRIL (ENALAPRIL) [Concomitant]

REACTIONS (8)
  - Hypocoagulable state [None]
  - Hypotension [None]
  - Hyponatraemia [None]
  - Hyperkalaemia [None]
  - International normalised ratio increased [None]
  - Back pain [None]
  - Renal failure acute [None]
  - Drug interaction [None]
